FAERS Safety Report 13192641 (Version 1)
Quarter: 2017Q1

REPORT INFORMATION
  Report Type: Spontaneous
  Country: None (occurrence: CZ)
  Receive Date: 20170207
  Receipt Date: 20170207
  Transmission Date: 20170428
  Serious: Yes (Hospitalization, Other)
  Sender: FDA-Public Use
  Company Number: CZ-MERZ NORTH AMERICA, INC.-17MRZ-00028

PATIENT
  Sex: Female
  Weight: 45 kg

DRUGS (2)
  1. ASCLERA [Suspect]
     Active Substance: POLIDOCANOL
     Indication: VARICOSE VEIN
     Dosage: 2ML
     Dates: start: 20151208, end: 20151208
  2. MINERVA [Concomitant]
     Active Substance: CYPROTERONE ACETATE\ETHINYL ESTRADIOL

REACTIONS (8)
  - Lymphadenopathy [Unknown]
  - Drug administration error [Unknown]
  - Dizziness [Unknown]
  - Purulence [Unknown]
  - Vertigo [Unknown]
  - Acne [Unknown]
  - Pericarditis [Unknown]
  - Gastritis [Unknown]
